FAERS Safety Report 8715509 (Version 2)
Quarter: 2015Q1

REPORT INFORMATION
  Report Type: Report from Study
  Country: US (occurrence: US)
  Receive Date: 20120809
  Receipt Date: 20150226
  Transmission Date: 20150721
  Serious: Yes (Other)
  Sender: FDA-Public Use
  Company Number: US-ROCHE-1098176

PATIENT
  Age: 35 Year
  Sex: Male
  Weight: 91.63 kg

DRUGS (15)
  1. PULMICORT TURBUHALER [Concomitant]
     Active Substance: BUDESONIDE
     Dosage: 2 PUFF
     Route: 065
  2. XOLAIR [Suspect]
     Active Substance: OMALIZUMAB
     Route: 058
     Dates: start: 20120711
  3. ALBUTEROL. [Concomitant]
     Active Substance: ALBUTEROL
     Dosage: ONCE IN FOUR TO SIX HOURS^?2 PUFF AS NEEDED
     Route: 065
  4. AVELOX (UNITED STATES) [Concomitant]
  5. PREDNISONE. [Concomitant]
     Active Substance: PREDNISONE
     Route: 065
  6. PROVENTIL HFA [Concomitant]
     Active Substance: ALBUTEROL SULFATE
     Dosage: 2 PUFF AS NEEDED
     Route: 065
  7. PROTONIX (UNITED STATES) [Concomitant]
     Route: 065
  8. MAXAIR [Concomitant]
     Active Substance: PIRBUTEROL ACETATE
  9. XOLAIR [Suspect]
     Active Substance: OMALIZUMAB
     Indication: SEASONAL ALLERGY
     Route: 058
     Dates: start: 20081203, end: 20090409
  10. SYMBICORT [Concomitant]
     Active Substance: BUDESONIDE\FORMOTEROL FUMARATE DIHYDRATE
     Dosage: ONCE IN 12 HOURS?2 PUFF
     Route: 065
  11. NASACORT AQ [Concomitant]
     Active Substance: TRIAMCINOLONE ACETONIDE
     Dosage: EACH NOSTRIL 2 TIMES A DAY
     Route: 065
  12. CODEINE [Concomitant]
     Active Substance: CODEINE
  13. XOLAIR [Suspect]
     Active Substance: OMALIZUMAB
     Indication: ASTHMA
     Route: 058
     Dates: start: 20070207, end: 20081115
  14. EPINEPHRINE. [Concomitant]
     Active Substance: EPINEPHRINE
     Route: 028
  15. PHENERGAN [Concomitant]
     Active Substance: PROMETHAZINE HYDROCHLORIDE

REACTIONS (18)
  - Dyspnoea [Unknown]
  - Chest pain [Unknown]
  - Chest discomfort [Unknown]
  - Gastric disorder [Unknown]
  - Vital capacity decreased [Unknown]
  - Productive cough [Unknown]
  - Chills [Unknown]
  - Dermatitis atopic [Unknown]
  - Asthma [Recovering/Resolving]
  - Dry skin [Unknown]
  - Wheezing [Unknown]
  - Chest discomfort [Unknown]
  - Gastrooesophageal reflux disease [Unknown]
  - Malaise [Unknown]
  - Sleep disorder [Unknown]
  - Upper respiratory tract infection [Unknown]
  - Malaise [Unknown]
  - Rhinitis [Unknown]

NARRATIVE: CASE EVENT DATE: 20070606
